FAERS Safety Report 7324081-0 (Version None)
Quarter: 2011Q1

REPORT INFORMATION
  Report Type: 
  Country: None (occurrence: None)
  Receive Date: 20110217
  Receipt Date: 20110208
  Transmission Date: 20110831
  Serious: Yes (Other)
  Sender: FDA-Public Use
  Company Number: 2011MA001151

PATIENT
  Sex: Male

DRUGS (1)
  1. METOCLOPRAMIDE [Suspect]
     Dosage: PO
     Route: 048
     Dates: start: 20030601, end: 20040301

REACTIONS (3)
  - PARKINSON'S DISEASE [None]
  - DYSKINESIA [None]
  - RESTLESS LEGS SYNDROME [None]
